FAERS Safety Report 13255849 (Version 2)
Quarter: 2017Q1

REPORT INFORMATION
  Report Type: Report from Study
  Country: BE (occurrence: BE)
  Receive Date: 20170221
  Receipt Date: 20170227
  Transmission Date: 20170428
  Serious: Yes (Hospitalization)
  Sender: FDA-Public Use
  Company Number: BE-JNJFOC-20170213896

PATIENT
  Age: 61 Year
  Sex: Male
  Weight: 74 kg

DRUGS (13)
  1. ZOLPIDEM [Concomitant]
     Active Substance: ZOLPIDEM\ZOLPIDEM TARTRATE
     Route: 048
  2. LANOXIN [Concomitant]
     Active Substance: DIGOXIN
     Route: 048
  3. STRUMAZOL [Concomitant]
     Active Substance: METHIMAZOLE
     Route: 048
  4. IBRUTINIB [Suspect]
     Active Substance: IBRUTINIB
     Indication: MANTLE CELL LYMPHOMA
     Route: 048
     Dates: start: 20150903
  5. BISOPROLOL EG [Concomitant]
     Active Substance: BISOPROLOL
     Route: 048
  6. LYSOMUCIL [Concomitant]
     Active Substance: ACETYLCYSTEINE
     Route: 048
  7. CRESTOR [Concomitant]
     Active Substance: ROSUVASTATIN CALCIUM
     Route: 048
  8. ESCITALOPRAM [Concomitant]
     Active Substance: ESCITALOPRAM OXALATE
     Route: 048
  9. XARELTO [Concomitant]
     Active Substance: RIVAROXABAN
     Route: 048
  10. METFORMINE SANDOZ [Concomitant]
     Active Substance: METFORMIN HYDROCHLORIDE
     Route: 048
  11. FOLINIC ACID [Concomitant]
     Active Substance: LEUCOVORIN
     Route: 048
  12. OMEPRAZOLE EG [Concomitant]
     Route: 048
  13. LEVOTHYROXINE. [Concomitant]
     Active Substance: LEVOTHYROXINE
     Route: 048

REACTIONS (2)
  - Headache [Recovered/Resolved]
  - Confusional state [Recovered/Resolved]

NARRATIVE: CASE EVENT DATE: 20160126
